FAERS Safety Report 24003513 (Version 2)
Quarter: 2024Q2

REPORT INFORMATION
  Report Type: Spontaneous
  Country: US (occurrence: US)
  Receive Date: 20240624
  Receipt Date: 20240626
  Transmission Date: 20240716
  Serious: Yes (Hospitalization, Other)
  Sender: FDA-Public Use
  Company Number: US-STRIDES ARCOLAB LIMITED-2023SP000882

PATIENT

DRUGS (6)
  1. VANCOMYCIN [Suspect]
     Active Substance: VANCOMYCIN
     Indication: Staphylococcal infection
     Dosage: UNK
     Route: 065
     Dates: start: 202102, end: 20210226
  2. DALBAVANCIN [Suspect]
     Active Substance: DALBAVANCIN
     Indication: Staphylococcal infection
     Dosage: 1500 MILLIGRAM
     Route: 065
     Dates: start: 20210226, end: 2021
  3. DALBAVANCIN [Suspect]
     Active Substance: DALBAVANCIN
     Indication: Arteriovenous fistula site infection
     Dosage: 1000 MILLIGRAM
     Route: 065
     Dates: start: 20210315, end: 2021
  4. DAPTOMYCIN [Suspect]
     Active Substance: DAPTOMYCIN
     Indication: Staphylococcal infection
     Dosage: UNK
     Route: 065
     Dates: start: 2021, end: 2021
  5. CEFTRIAXONE [Concomitant]
     Active Substance: CEFTRIAXONE\CEFTRIAXONE SODIUM
     Indication: Evidence based treatment
     Dosage: UNK
     Route: 065
     Dates: start: 202102, end: 202102
  6. AZITHROMYCIN [Concomitant]
     Active Substance: AZITHROMYCIN
     Indication: Evidence based treatment
     Dosage: UNK
     Route: 065
     Dates: start: 202102, end: 202102

REACTIONS (2)
  - Multiple-drug resistance [Unknown]
  - Endocarditis [Unknown]

NARRATIVE: CASE EVENT DATE: 20210201
